FAERS Safety Report 4383792-X (Version None)
Quarter: 2004Q2

REPORT INFORMATION
  Report Type: 
  Country: None (occurrence: None)
  Receive Date: 20040608
  Receipt Date: 20031003
  Transmission Date: 20050107
  Serious: Yes (Other)
  Sender: FDA-Public Use
  Company Number: 200313637BCC

PATIENT
  Sex: Female

DRUGS (2)
  1. ALEVE [Suspect]
     Indication: BACK PAIN
     Dosage: 440 MG, QD, ORAL
     Route: 048
     Dates: start: 20031001
  2. HEART DISEASE MEDICATION [Concomitant]

REACTIONS (6)
  - DYSPHAGIA [None]
  - EYE IRRITATION [None]
  - EYE OEDEMA [None]
  - HYPERSENSITIVITY [None]
  - NASAL DISCOMFORT [None]
  - SKIN IRRITATION [None]
